FAERS Safety Report 5429394-5 (Version None)
Quarter: 2007Q3

REPORT INFORMATION
  Report Type: 
  Country: None (occurrence: None)
  Receive Date: 20070829
  Receipt Date: 20070816
  Transmission Date: 20080115
  Serious: Yes (Hospitalization)
  Sender: FDA-Public Use
  Company Number: B0484745A

PATIENT
  Sex: Female

DRUGS (2)
  1. NIQUITIN CQ PATCH, CLEAR [Suspect]
  2. STEROIDS [Concomitant]

REACTIONS (4)
  - ERYTHEMA [None]
  - HYPERAESTHESIA [None]
  - INFECTION [None]
  - WEIGHT INCREASED [None]
